FAERS Safety Report 6301994-X (Version None)
Quarter: 2009Q3

REPORT INFORMATION
  Report Type: 
  Country: None (occurrence: None)
  Receive Date: 20090807
  Receipt Date: 20090602
  Transmission Date: 20100115
  Serious: Yes (Other)
  Sender: FDA-Public Use
  Company Number: JP-PFIZER INC-2009220951

PATIENT
  Age: 34 Year

DRUGS (4)
  1. CARDENALIN [Suspect]
     Indication: HYPERTENSION
     Dosage: UNK
     Route: 048
  2. OLMESARTAN MEDOXOMIL AND HYDROCHLOROTHIZIDE [Suspect]
     Indication: HYPERTENSION
     Dosage: 20 MG, 1X/DAY
     Route: 048
     Dates: start: 20090101
  3. ARTIST [Suspect]
     Dosage: UNK
     Route: 048
     Dates: start: 20081101
  4. ASPARA K [Concomitant]
     Dosage: UNK
     Dates: start: 20081101

REACTIONS (1)
  - HYPOKALAEMIA [None]
